FAERS Safety Report 8998241 (Version 1)
Quarter: 2013Q1

REPORT INFORMATION
  Report Type: Spontaneous
  Country: US (occurrence: US)
  Receive Date: 20130104
  Receipt Date: 20130104
  Transmission Date: 20140127
  Serious: No
  Sender: FDA-Public Use
  Company Number: US-JNJFOC-20121209122

PATIENT
  Age: 51 Year
  Sex: Male

DRUGS (5)
  1. RISPERDAL [Suspect]
     Indication: SCHIZOPHRENIA
     Route: 048
     Dates: start: 20121213
  2. RISPERDAL [Suspect]
     Indication: SCHIZOPHRENIA
     Route: 048
     Dates: end: 20121213
  3. INVEGA SUSTENNA [Suspect]
     Indication: SCHIZOPHRENIA
     Route: 030
     Dates: start: 20121213
  4. PROZAC [Concomitant]
     Route: 048
     Dates: start: 20121213
  5. PROZAC [Concomitant]
     Route: 048
     Dates: end: 20121213

REACTIONS (2)
  - Abnormal behaviour [Not Recovered/Not Resolved]
  - Inappropriate schedule of drug administration [Recovered/Resolved]
